FAERS Safety Report 4918371-6 (Version None)
Quarter: 2006Q1

REPORT INFORMATION
  Report Type: 
  Country: None (occurrence: None)
  Receive Date: 20060222
  Receipt Date: 20060216
  Transmission Date: 20060701
  Serious: Yes (Life-Threatening, Hospitalization)
  Sender: FDA-Public Use
  Company Number: PHEH2006US02235

PATIENT
  Age: 71 Year
  Sex: Male
  Weight: 81 kg

DRUGS (1)
  1. EXJADE [Suspect]
     Indication: BLOOD PRODUCT TRANSFUSION
     Dosage: 500 MG, TID
     Route: 048
     Dates: start: 20060121, end: 20060209

REACTIONS (3)
  - DIARRHOEA [None]
  - RASH [None]
  - RENAL FAILURE [None]
